FAERS Safety Report 6844608-2 (Version None)
Quarter: 2010Q3

REPORT INFORMATION
  Report Type: 
  Country: None (occurrence: None)
  Receive Date: 20100715
  Receipt Date: 20100702
  Transmission Date: 20110219
  Serious: Yes (Other)
  Sender: FDA-Public Use
  Company Number: DE-TEVA-240833ISR

PATIENT
  Sex: Female

DRUGS (1)
  1. AMLODIPINE [Suspect]
     Route: 048
     Dates: start: 20100619, end: 20100619

REACTIONS (2)
  - DISORIENTATION [None]
  - HOT FLUSH [None]
